FAERS Safety Report 6048615-1 (Version None)
Quarter: 2009Q1

REPORT INFORMATION
  Report Type: 
  Country: None (occurrence: None)
  Receive Date: 20090123
  Receipt Date: 20090120
  Transmission Date: 20090719
  Serious: Yes (Hospitalization)
  Sender: FDA-Public Use
  Company Number: SE-BRISTOL-MYERS SQUIBB COMPANY-14422315

PATIENT
  Age: 52 Year
  Sex: Female

DRUGS (13)
  1. ABILIFY [Suspect]
     Indication: SCHIZOPHRENIA
     Dosage: INTERRUPTED ON 11FEB08;REINTRODUCED 5MG ON 19SEP08
     Route: 048
     Dates: start: 20070618
  2. TRILAFON [Concomitant]
  3. ABILIFY [Concomitant]
  4. VALPROIC ACID [Concomitant]
     Dosage: ERGENYL RETARD 500MG(2+0+2)
  5. SPIRONOLAKTON [Concomitant]
  6. IMPUGAN [Concomitant]
  7. NITRAZEPAM [Concomitant]
     Dosage: 5MG TO THE NIGHT
  8. AKINETON [Concomitant]
  9. ACETYLCYSTEINE [Concomitant]
  10. SYMBICORT [Concomitant]
     Dosage: 1 DOSAGE FORM = 1 DOSE MORNING+EVENING
  11. SPIRIVA [Concomitant]
     Dosage: 1 DOSAGE FORM = 1 DOSE
     Route: 055
  12. FRAGMIN [Concomitant]
  13. OXASCAND [Concomitant]
     Dosage: WITH A MAXIMAM DOSE OF 2 TABS/DAY

REACTIONS (5)
  - CHRONIC OBSTRUCTIVE PULMONARY DISEASE [None]
  - OEDEMA PERIPHERAL [None]
  - PNEUMONIA [None]
  - SKIN INFECTION [None]
  - THROMBOSIS [None]
